FAERS Safety Report 12340363 (Version 4)
Quarter: 2017Q1

REPORT INFORMATION
  Report Type: Report from Study
  Country: FR (occurrence: FR)
  Receive Date: 20160506
  Receipt Date: 20170202
  Transmission Date: 20170428
  Serious: Yes (Hospitalization)
  Sender: FDA-Public Use
  Company Number: PHHO2016FR006501

PATIENT
  Age: 75 Year
  Sex: Male

DRUGS (3)
  1. NEORAL [Suspect]
     Active Substance: CYCLOSPORINE
     Indication: RENAL TRANSPLANT
     Dosage: UNK
     Route: 065
  2. MYFORTIC [Suspect]
     Active Substance: MYCOPHENOLATE SODIUM
     Indication: RENAL TRANSPLANT
     Dosage: 1440 MG, QD
     Route: 065
     Dates: start: 20150411, end: 20150628
  3. NO TREATMENT RECEIVED [Suspect]
     Active Substance: UNSPECIFIED INGREDIENT
     Indication: RENAL TRANSPLANT
     Dosage: NO TREATMENT
     Route: 065

REACTIONS (6)
  - Diarrhoea [Recovered/Resolved]
  - Complications of transplanted kidney [Recovered/Resolved with Sequelae]
  - Acute kidney injury [Recovered/Resolved]
  - Vomiting [Recovered/Resolved]
  - Melaena [Recovered/Resolved]
  - Acute prerenal failure [Recovered/Resolved]

NARRATIVE: CASE EVENT DATE: 20150624
